FAERS Safety Report 25009459 (Version 1)
Quarter: 2025Q1

REPORT INFORMATION
  Report Type: Spontaneous
  Country: US (occurrence: None)
  Receive Date: 20250225
  Receipt Date: 20250225
  Transmission Date: 20250409
  Serious: Yes (Disabling)
  Sender: FDA-CTU
  Company Number: None

PATIENT
  Age: 27 Year
  Sex: Male

DRUGS (2)
  1. TUBERCULIN PURIFIED PROTEIN DERIVATIVE [Suspect]
     Active Substance: TUBERCULIN PURIFIED PROTEIN DERIVATIVE
  2. COLLAGEN [Suspect]
     Active Substance: COLLAGEN

REACTIONS (10)
  - Dyspnoea [None]
  - Chest discomfort [None]
  - Paraesthesia [None]
  - Headache [None]
  - Impaired healing [None]
  - Asthenia [None]
  - Exercise tolerance decreased [None]
  - Loss of employment [None]
  - Impaired driving ability [None]
  - Back injury [None]

NARRATIVE: CASE EVENT DATE: 20151110
